FAERS Safety Report 8895600 (Version 1)
Quarter: 2012Q4

REPORT INFORMATION
  Report Type: 
  Country: US (occurrence: US)
  Receive Date: 20121108
  Receipt Date: 20121108
  Transmission Date: 20130627
  Serious: No
  Sender: FDA-Public Use
  Company Number: US-VERTEX PHARMACEUTICAL INC.-2012-024200

PATIENT
  Age: 66 None
  Sex: Female

DRUGS (4)
  1. INCIVEK [Suspect]
     Indication: HEPATITIS C
     Dosage: 750 mg, tid
     Dates: start: 20121017
  2. RIBAPAK [Suspect]
     Indication: HEPATITIS C
     Dosage: 400 mg, bid
     Dates: start: 20121017
  3. PEGASYS [Suspect]
     Indication: HEPATITIS C
     Dosage: 180 ?g, weekly
     Route: 058
     Dates: start: 20121017
  4. SULFAMETHOXAZOLE AND TRIMETHOPRIM [Concomitant]

REACTIONS (4)
  - Urinary tract infection [Recovered/Resolved]
  - Faeces discoloured [None]
  - Rash [Not Recovered/Not Resolved]
  - Diarrhoea [Recovered/Resolved]
